FAERS Safety Report 4523747-5 (Version None)
Quarter: 2004Q4

REPORT INFORMATION
  Report Type: 
  Country: None (occurrence: None)
  Receive Date: 20041210
  Receipt Date: 20041210
  Transmission Date: 20050328
  Serious: Yes (Hospitalization)
  Sender: FDA-Public Use
  Company Number: None

PATIENT
  Age: 54 Year
  Sex: Male
  Weight: 107.0489 kg

DRUGS (2)
  1. ROSIGLITAZONE MALEATE [Suspect]
     Indication: DIABETES MELLITUS
     Dosage: 8 MG DAILY
     Dates: start: 20040701, end: 20041001
  2. SIMVASTATIN [Suspect]
     Indication: HYPERCHOLESTEROLAEMIA
     Dosage: 40 MG DAILY
     Dates: start: 20040501, end: 20041001

REACTIONS (7)
  - ABDOMINAL PAIN UPPER [None]
  - DEHYDRATION [None]
  - DYSPNOEA [None]
  - PYREXIA [None]
  - RENAL IMPAIRMENT [None]
  - RHABDOMYOLYSIS [None]
  - URINE OUTPUT DECREASED [None]
